FAERS Safety Report 17311612 (Version 2)
Quarter: 2021Q1

REPORT INFORMATION
  Report Type: Spontaneous
  Country: US (occurrence: US)
  Receive Date: 20200123
  Receipt Date: 20210115
  Transmission Date: 20210419
  Serious: No
  Sender: FDA-Public Use
  Company Number: US-ROCHE-2259455

PATIENT
  Sex: Female
  Weight: 62.65 kg

DRUGS (5)
  1. CAPLACIZUMAB [Suspect]
     Active Substance: CAPLACIZUMAB
     Indication: THROMBOTIC THROMBOCYTOPENIC PURPURA
     Route: 065
     Dates: start: 20190623, end: 20190626
  2. RITUXAN [Suspect]
     Active Substance: RITUXIMAB
     Indication: THROMBOTIC THROMBOCYTOPENIC PURPURA
     Route: 042
     Dates: start: 20190222, end: 20190315
  3. RITUXAN [Suspect]
     Active Substance: RITUXIMAB
     Route: 042
     Dates: start: 20190619, end: 20190712
  4. ASPRIN [Concomitant]
     Active Substance: ASPIRIN
     Indication: PRE-ECLAMPSIA
  5. LABETALOL [Concomitant]
     Active Substance: LABETALOL\LABETALOL HYDROCHLORIDE
     Indication: HYPERTENSION
     Dates: start: 20190615, end: 20190702

REACTIONS (4)
  - No adverse event [Unknown]
  - Off label use [Unknown]
  - Pregnancy [Unknown]
  - Intentional product use issue [Unknown]
